FAERS Safety Report 9802323 (Version 1)
Quarter: 2014Q1

REPORT INFORMATION
  Report Type: Report from Study
  Country: US (occurrence: US)
  Receive Date: 20140107
  Receipt Date: 20140107
  Transmission Date: 20141002
  Serious: Yes (Other)
  Sender: FDA-Public Use
  Company Number: US-US-EMD SERONO, INC.-7260854

PATIENT
  Sex: Male
  Weight: 64 kg

DRUGS (14)
  1. SEROSTIM [(SOMATROPIN (RDNA ORIGIN) FOR INJECTION)] [Suspect]
     Indication: HIV WASTING SYNDROME
     Dates: start: 20120524
  2. PARACETAMOL [Concomitant]
     Indication: INTERVERTEBRAL DISC PROTRUSION
  3. CODEINE [Concomitant]
     Indication: INTERVERTEBRAL DISC PROTRUSION
  4. KALETRA                            /01399701/ [Concomitant]
     Indication: EXPOSURE TO COMMUNICABLE DISEASE
  5. LIPITOR [Concomitant]
     Indication: HYPERLIPIDAEMIA
     Dates: start: 20130226
  6. METOPROLOL [Concomitant]
     Indication: HYPERTENSION
     Dates: start: 20130328
  7. TESTOSTERONE [Concomitant]
     Indication: HYPOGONADISM MALE
  8. GABAPENTIN [Concomitant]
     Indication: NEUROPATHY PERIPHERAL
     Dates: start: 20130226
  9. AMITRIPTYLINE [Concomitant]
     Indication: NEUROPATHY PERIPHERAL
     Dates: start: 20121127
  10. HYDROCODONE W/ACETAMINOPHEN [Concomitant]
     Indication: NEUROPATHY PERIPHERAL
     Dosage: 10 MG TO 325 MG
     Dates: start: 20121127
  11. TYLENOL WITH CODEINE [Concomitant]
     Indication: INTERVERTEBRAL DISC PROTRUSION
     Dates: start: 20121127
  12. MOTRIN [Concomitant]
     Indication: PRODUCT USED FOR UNKNOWN INDICATION
     Dates: start: 20121127
  13. NORVIR [Concomitant]
     Indication: HIV INFECTION
     Dates: start: 20130226
  14. PROMETHAZINE [Concomitant]
     Indication: PRODUCT USED FOR UNKNOWN INDICATION
     Dates: start: 20130328, end: 20130528

REACTIONS (4)
  - Arthropathy [Recovering/Resolving]
  - Exostosis [Unknown]
  - Gynaecomastia [Unknown]
  - Arthralgia [Not Recovered/Not Resolved]
